FAERS Safety Report 26086958 (Version 1)
Quarter: 2025Q4

REPORT INFORMATION
  Report Type: Spontaneous
  Country: US (occurrence: US)
  Receive Date: 20251125
  Receipt Date: 20251125
  Transmission Date: 20260117
  Serious: Yes (Hospitalization, Other)
  Sender: RANBAXY
  Company Number: US-SUN PHARMACEUTICAL INDUSTRIES INC-2025R1-537400

PATIENT
  Age: 38 Year
  Sex: Female

DRUGS (2)
  1. BUPROPION [Suspect]
     Active Substance: BUPROPION
     Indication: Product used for unknown indication
     Dosage: 30000 MILLIGRAM
     Route: 048
  2. MIDAZOLAM [Suspect]
     Active Substance: MIDAZOLAM
     Indication: Agitation
     Dosage: 4 MILLIGRAM
     Route: 065

REACTIONS (4)
  - Overdose [Unknown]
  - Hypotension [Unknown]
  - Agitation [Unknown]
  - Cardiac arrest [Unknown]
